FAERS Safety Report 7215486-7 (Version None)
Quarter: 2011Q1

REPORT INFORMATION
  Report Type: 
  Country: None (occurrence: None)
  Receive Date: 20110107
  Receipt Date: 20101230
  Transmission Date: 20110831
  Serious: No
  Sender: FDA-Public Use
  Company Number: A0901042A

PATIENT
  Age: 80 Year
  Sex: Male

DRUGS (3)
  1. PROMACTA [Suspect]
     Indication: IDIOPATHIC THROMBOCYTOPENIC PURPURA
     Route: 048
     Dates: start: 20081230
  2. IMMUNE GLOBULIN INTRAVENOUS (HUMAN) [Concomitant]
  3. PREDNISONE [Concomitant]

REACTIONS (1)
  - BONE MARROW RETICULIN FIBROSIS [None]
